FAERS Safety Report 13355407 (Version 1)
Quarter: 2017Q1

REPORT INFORMATION
  Report Type: Spontaneous
  Country: US (occurrence: US)
  Receive Date: 20170321
  Receipt Date: 20170321
  Transmission Date: 20170429
  Serious: No
  Sender: FDA-Public Use
  Company Number: None

PATIENT
  Age: 64 Year
  Sex: Female
  Weight: 59.02 kg

DRUGS (7)
  1. ELIQUIS [Suspect]
     Active Substance: APIXABAN
     Indication: KNEE OPERATION
     Dosage: ELIQUIS 10MG (2 TABS) TWICE A DAY 1ST WEEK 1 TAB TWICE A DAY FOR 3 DAYS
     Route: 048
     Dates: start: 20170220, end: 20170301
  2. VITAMINS [Concomitant]
     Active Substance: VITAMINS
  3. VITAMIN D [Concomitant]
     Active Substance: CHOLECALCIFEROL
  4. ELIQUIS [Suspect]
     Active Substance: APIXABAN
     Indication: THROMBOSIS PROPHYLAXIS
     Dosage: ELIQUIS 10MG (2 TABS) TWICE A DAY 1ST WEEK 1 TAB TWICE A DAY FOR 3 DAYS
     Route: 048
     Dates: start: 20170220, end: 20170301
  5. PROLIA [Concomitant]
     Active Substance: DENOSUMAB
  6. CALCIUM + VITAMIN D [Concomitant]
     Active Substance: CALCIUM\VITAMIN D
  7. SIMVISTATIN [Concomitant]
     Active Substance: SIMVASTATIN

REACTIONS (3)
  - Back pain [None]
  - Abdominal pain upper [None]
  - Abdominal distension [None]

NARRATIVE: CASE EVENT DATE: 20170301
